FAERS Safety Report 8304209-6 (Version None)
Quarter: 2012Q2

REPORT INFORMATION
  Report Type: 
  Country: None (occurrence: None)
  Receive Date: 20120423
  Receipt Date: 20120417
  Transmission Date: 20120825
  Serious: Yes (Other)
  Sender: FDA-Public Use
  Company Number: US-BAYER-2012-038057

PATIENT
  Sex: Female

DRUGS (1)
  1. ALEVE (CAPLET) [Suspect]
     Indication: DYSMENORRHOEA

REACTIONS (4)
  - THROMBOSIS [None]
  - DYSMENORRHOEA [None]
  - MENORRHAGIA [None]
  - DRUG INEFFECTIVE [None]
